FAERS Safety Report 4738666-9 (Version None)
Quarter: 2005Q3

REPORT INFORMATION
  Report Type: 
  Country: None (occurrence: None)
  Receive Date: 20050808
  Receipt Date: 20050808
  Transmission Date: 20060218
  Serious: Yes (Hospitalization)
  Sender: FDA-Public Use
  Company Number: None

PATIENT
  Age: 70 Year
  Sex: Male
  Weight: 59.1 kg

DRUGS (8)
  1. DOCETAXEL [Suspect]
     Indication: PROSTATE CANCER METASTATIC
     Dosage: 130 MG   EVERY 21 DAYS   INTRAVENOU
     Route: 042
     Dates: start: 20050726, end: 20050726
  2. REVLIMID [Suspect]
     Indication: PROSTATE CANCER METASTATIC
     Dosage: 5 MG   QD X14 DAYS   ORAL
     Route: 048
     Dates: start: 20050726, end: 20050731
  3. FAMOTIDINE [Concomitant]
  4. PREDNISONE [Concomitant]
  5. CALCIUM GLUCONATE [Concomitant]
  6. OXYCONTIN [Concomitant]
  7. OXYCODONE [Concomitant]
  8. LUPRON [Concomitant]

REACTIONS (2)
  - NAUSEA [None]
  - VOMITING [None]
